FAERS Safety Report 9456529 (Version 1)
Quarter: 2013Q3

REPORT INFORMATION
  Report Type: Spontaneous
  Country: JP (occurrence: JP)
  Receive Date: 20130813
  Receipt Date: 20130813
  Transmission Date: 20140515
  Serious: Yes (Hospitalization)
  Sender: FDA-Public Use
  Company Number: JP-ALLERGAN-1312071US

PATIENT
  Age: 71 Year
  Sex: Female

DRUGS (8)
  1. BOTOX [Suspect]
     Indication: MUSCLE SPASMS
     Dosage: UNK UNK, SINGLE
     Route: 030
     Dates: start: 20130515, end: 20130515
  2. OLMETEC [Concomitant]
     Route: 048
  3. NORVASC [Concomitant]
     Route: 048
  4. NEXIUM [Concomitant]
     Route: 048
  5. MAGMITT [Concomitant]
     Route: 048
  6. LENDORMIN [Concomitant]
     Route: 048
  7. SEPAZON [Concomitant]
     Route: 048
  8. UNKNOWNDRUG [Concomitant]
     Route: 048

REACTIONS (2)
  - Femur fracture [Unknown]
  - Fall [Unknown]
